FAERS Safety Report 5109046-1 (Version None)
Quarter: 2006Q3

REPORT INFORMATION
  Report Type: 
  Country: None (occurrence: None)
  Receive Date: 20060918
  Receipt Date: 20060906
  Transmission Date: 20061208
  Serious: Yes (Death, Life-Threatening, Other)
  Sender: FDA-Public Use
  Company Number: 2006103442

PATIENT
  Age: 86 Year
  Sex: Male
  Weight: 44.4 kg

DRUGS (11)
  1. ZYVOX [Suspect]
     Indication: PNEUMONIA STAPHYLOCOCCAL
     Dosage: 1200 MG (2 IN 1 D); INTRAVENOUS
     Dates: start: 20060818, end: 20060824
  2. TARGOCID [Suspect]
     Indication: PNEUMONIA STAPHYLOCOCCAL
     Dosage: 400 MG (200 MG, 2 IN 1 D); INTRAVENOUS
     Route: 042
     Dates: start: 20060815, end: 20060817
  3. VANCOMYCIN [Concomitant]
  4. CEFOTIAM HYDROCHLORIDE [Concomitant]
  5. CEFOPERAZONE W/SULBACTAM [Concomitant]
  6. FAMOTIDINE [Concomitant]
  7. THEOPHYLLINE [Concomitant]
  8. TULOBUTEROL HYDROCHLORIDE [Concomitant]
  9. FUROSEMIDE [Concomitant]
  10. RIPERACILLIN SODIUM [Concomitant]
  11. GABEXATE MESILATE [Concomitant]

REACTIONS (10)
  - BONE MARROW FAILURE [None]
  - DISSEMINATED INTRAVASCULAR COAGULATION [None]
  - FIBRIN DEGRADATION PRODUCTS INCREASED [None]
  - GENERAL PHYSICAL HEALTH DETERIORATION [None]
  - HAEMORRHAGE SUBCUTANEOUS [None]
  - MOUTH HAEMORRHAGE [None]
  - PYREXIA [None]
  - RENAL FAILURE ACUTE [None]
  - THROMBOCYTOPENIA [None]
  - WHITE BLOOD CELL COUNT INCREASED [None]
